FAERS Safety Report 7461045-0 (Version None)
Quarter: 2011Q2

REPORT INFORMATION
  Report Type: 
  Country: None (occurrence: None)
  Receive Date: 20110505
  Receipt Date: 20110502
  Transmission Date: 20111010
  Serious: Yes (Death)
  Sender: FDA-Public Use
  Company Number: US-GENZYME-FLUD-1001113

PATIENT
  Age: 49 Year
  Sex: Female

DRUGS (2)
  1. FLUDARA [Suspect]
     Indication: MALIGNANT MELANOMA
     Dosage: 25 MG/M2 FOR 5 DOSES
     Route: 065
  2. CYCLOPHOSPHAMIDE [Suspect]
     Indication: MALIGNANT MELANOMA
     Dosage: 60 MG/KG FOR 2 DOSES
     Route: 065

REACTIONS (1)
  - DISEASE PROGRESSION [None]
